FAERS Safety Report 9774790 (Version 1)
Quarter: 2013Q4

REPORT INFORMATION
  Report Type: Spontaneous
  Country: US (occurrence: None)
  Receive Date: 20131219
  Receipt Date: 20131219
  Transmission Date: 20140711
  Serious: Yes (Life-Threatening, Disabling)
  Sender: FDA-Public Use
  Company Number: None

PATIENT
  Age: 49 Year
  Sex: Female
  Weight: 77.11 kg

DRUGS (12)
  1. LYRICA [Suspect]
     Indication: PAIN
     Route: 048
  2. COMBIVENT [Concomitant]
  3. SEREVENT [Concomitant]
  4. PRILOSECT [Concomitant]
  5. THYROID RX [Concomitant]
  6. XOPENEX [Concomitant]
  7. LORATAB [Concomitant]
  8. SUMAVEL DOSE PRO [Concomitant]
  9. IBPROFEN [Concomitant]
  10. TYLENOL [Concomitant]
  11. FISH OIL [Concomitant]
  12. FIBER GUMMY [Concomitant]

REACTIONS (7)
  - Vertigo [None]
  - Abnormal behaviour [None]
  - Suicide attempt [None]
  - Anger [None]
  - Depression [None]
  - Disturbance in attention [None]
  - Migraine [None]
